FAERS Safety Report 10029190 (Version 1)
Quarter: 2014Q1

REPORT INFORMATION
  Report Type: Spontaneous
  Country: NL (occurrence: NL)
  Receive Date: 20140321
  Receipt Date: 20140321
  Transmission Date: 20141002
  Serious: Yes (Life-Threatening)
  Sender: FDA-Public Use
  Company Number: NL-ASTRAZENECA-2014SE19270

PATIENT
  Age: 18 Year
  Sex: Male
  Weight: 76 kg

DRUGS (7)
  1. SEROQUEL [Suspect]
     Indication: SLEEP DISORDER
     Route: 048
     Dates: start: 201312
  2. SEROQUEL [Interacting]
     Indication: SLEEP DISORDER
     Route: 048
     Dates: start: 201312
  3. MIRTAZAPINE [Interacting]
     Indication: DEPRESSION
     Route: 048
     Dates: start: 201312
  4. MIRTAZAPINE [Interacting]
     Indication: DEPRESSION
     Route: 048
  5. PAROXETINE [Interacting]
     Indication: DEPRESSION
     Route: 048
     Dates: start: 201311
  6. FLUOXETINE [Interacting]
     Indication: DEPRESSION
     Route: 048
     Dates: start: 201402
  7. LORAZEPAM [Interacting]
     Indication: SLEEP DISORDER
     Route: 048
     Dates: start: 201312

REACTIONS (2)
  - Drug interaction [Not Recovered/Not Resolved]
  - Aggression [Not Recovered/Not Resolved]
